FAERS Safety Report 13292731 (Version 3)
Quarter: 2017Q2

REPORT INFORMATION
  Report Type: Report from Study
  Country: CA (occurrence: CA)
  Receive Date: 20170303
  Receipt Date: 20170505
  Transmission Date: 20170830
  Serious: Yes (Other)
  Sender: FDA-Public Use
  Company Number: CA-JNJFOC-20161207809

PATIENT
  Age: 34 Year
  Sex: Female
  Weight: 94 kg

DRUGS (7)
  1. REMICADE [Suspect]
     Active Substance: INFLIXIMAB
     Indication: CROHN^S DISEASE
     Route: 042
     Dates: start: 20161214
  2. REMICADE [Suspect]
     Active Substance: INFLIXIMAB
     Indication: CROHN^S DISEASE
     Dosage: PREVIOUSLY REPORTED AS 480 MG
     Route: 042
     Dates: start: 20151105
  3. QUESTRAN [Concomitant]
     Active Substance: CHOLESTYRAMINE
     Route: 065
     Dates: start: 20170119
  4. REMICADE [Suspect]
     Active Substance: INFLIXIMAB
     Indication: CROHN^S DISEASE
     Route: 042
     Dates: start: 20170227
  5. REMICADE [Suspect]
     Active Substance: INFLIXIMAB
     Indication: CROHN^S DISEASE
     Route: 042
     Dates: start: 20170119
  6. ZITHROMAX [Suspect]
     Active Substance: AZITHROMYCIN DIHYDRATE
     Indication: BRONCHITIS
     Route: 065
     Dates: start: 20161205
  7. REMICADE [Suspect]
     Active Substance: INFLIXIMAB
     Indication: CROHN^S DISEASE
     Route: 042
     Dates: start: 20170413

REACTIONS (7)
  - Bronchitis [Not Recovered/Not Resolved]
  - Drug effect decreased [Unknown]
  - Frequent bowel movements [Not Recovered/Not Resolved]
  - Off label use [Unknown]
  - Abdominal pain [Not Recovered/Not Resolved]
  - General physical health deterioration [Not Recovered/Not Resolved]
  - Inappropriate schedule of drug administration [Unknown]

NARRATIVE: CASE EVENT DATE: 20161205
